FAERS Safety Report 11100001 (Version 4)
Quarter: 2015Q4

REPORT INFORMATION
  Report Type: Report from Study
  Country: FR (occurrence: FR)
  Receive Date: 20150508
  Receipt Date: 20151019
  Transmission Date: 20160304
  Serious: Yes (Other)
  Sender: FDA-Public Use
  Company Number: FR-ACTELION-A-CH2015-117181

PATIENT
  Age: 53 Year
  Sex: Female
  Weight: 51 kg

DRUGS (1)
  1. MECHLORETHAMINE [Suspect]
     Active Substance: MECHLORETHAMINE
     Indication: OCCUPATIONAL EXPOSURE TO PRODUCT
     Dosage: 0.071 DF, UNK
     Route: 061
     Dates: start: 201501

REACTIONS (5)
  - Nasal discomfort [Recovered/Resolved]
  - Occupational exposure to product [Unknown]
  - Eye irritation [Recovered/Resolved]
  - Oral discomfort [Recovered/Resolved]
  - Headache [Recovered/Resolved]

NARRATIVE: CASE EVENT DATE: 201501
